FAERS Safety Report 7339370-3 (Version None)
Quarter: 2011Q1

REPORT INFORMATION
  Report Type: 
  Country: None (occurrence: None)
  Receive Date: 20110308
  Receipt Date: 20110302
  Transmission Date: 20110831
  Serious: Yes (Other)
  Sender: FDA-Public Use
  Company Number: CH-PFIZER INC-CH-WYE-H14937010

PATIENT
  Age: 79 Year
  Sex: Male
  Weight: 81 kg

DRUGS (13)
  1. CORDARONE [Interacting]
     Indication: HYPERCHOLESTEROLAEMIA
  2. RISPERDAL [Interacting]
     Dosage: .5 MG, 2X/DAY
     Route: 048
     Dates: start: 20100305, end: 20100308
  3. FLECTOR [Concomitant]
     Dosage: UNK
     Route: 061
  4. HUMALOG [Concomitant]
     Dosage: UNK
     Route: 058
  5. TOREM [Concomitant]
     Dosage: UNK
     Route: 048
     Dates: start: 20100301
  6. CORDARONE [Interacting]
     Indication: ATRIAL FLUTTER
  7. CO-DIOVAN [Concomitant]
     Dosage: 1 DF, 1X/DAY
     Route: 048
  8. SORTIS [Suspect]
     Indication: HYPERCHOLESTEROLAEMIA
     Dosage: 40 MG, 1X/DAY
     Route: 048
  9. AMLODIPINE BESILATE [Interacting]
     Dosage: 5 MG, 1X/DAY
     Route: 048
  10. CORDARONE [Interacting]
     Indication: ATRIAL FIBRILLATION
     Dosage: 200 MG, 1X/DAY
     Route: 048
  11. CITALOPRAM [Concomitant]
     Dosage: 20 MG, 1X/DAY
     Route: 048
  12. ANXIOLIT [Concomitant]
     Dosage: UNK
     Route: 048
  13. NEURONTIN [Concomitant]
     Dosage: UNK
     Route: 048

REACTIONS (4)
  - DRUG INTERACTION [None]
  - RHABDOMYOLYSIS [None]
  - RENAL FAILURE [None]
  - BLOOD CREATINE PHOSPHOKINASE INCREASED [None]
